FAERS Safety Report 5641808-4 (Version None)
Quarter: 2008Q1

REPORT INFORMATION
  Report Type: 
  Country: None (occurrence: None)
  Receive Date: 20080227
  Receipt Date: 20080222
  Transmission Date: 20080703
  Serious: Yes (Other)
  Sender: FDA-Public Use
  Company Number: US-ABBOTT-08P-163-0439477-00

PATIENT
  Sex: Female
  Weight: 109 kg

DRUGS (3)
  1. HUMIRA [Suspect]
     Indication: PSORIASIS
     Route: 058
     Dates: start: 20060101, end: 20070923
  2. ACETYLSALICYLIC ACID [Concomitant]
     Indication: BACK PAIN
     Route: 048
  3. AVENO [Concomitant]
     Indication: PSORIASIS
     Route: 061
     Dates: start: 20080111

REACTIONS (3)
  - ABORTION SPONTANEOUS [None]
  - HAEMORRHAGE [None]
  - METRORRHAGIA [None]
